FAERS Safety Report 7265500-8 (Version None)
Quarter: 2011Q1

REPORT INFORMATION
  Report Type: 
  Country: None (occurrence: None)
  Receive Date: 20110131
  Receipt Date: 20110124
  Transmission Date: 20110831
  Serious: Yes (Other)
  Sender: FDA-Public Use
  Company Number: KR-ROCHE-755246

PATIENT

DRUGS (5)
  1. BASILIXIMAB [Concomitant]
     Dosage: INDUCTION THERAPY, ON DAY 0 AND 4
     Route: 065
  2. TACROLIMUS [Suspect]
     Dosage: ON POST-OPERATIVE DAY 5
     Route: 065
  3. MYCOPHENOLATE MOFETIL [Suspect]
     Route: 065
  4. METHYLPREDNISOLONE [Suspect]
     Indication: IMMUNOSUPPRESSION
     Dosage: PRE, INTRA AND POST-OPERATIVE DAYS
     Route: 042
  5. METHYLPREDNISOLONE [Suspect]
     Dosage: DOSE TAPERED, ON DAY 7
     Route: 042

REACTIONS (17)
  - ABDOMINAL DISCOMFORT [None]
  - BILE DUCT CANCER [None]
  - PANCREATIC CARCINOMA [None]
  - TRANSPLANT REJECTION [None]
  - INFECTION [None]
  - RENAL CELL CARCINOMA [None]
  - LEUKOPENIA [None]
  - HEPATIC NEOPLASM MALIGNANT RECURRENT [None]
  - DIARRHOEA [None]
  - COLORECTAL CANCER [None]
  - BRAIN NEOPLASM [None]
  - OSTEONECROSIS [None]
  - HEPATITIS B [None]
  - LYMPHOMA [None]
  - DIABETES MELLITUS [None]
  - HYPERTENSION [None]
  - GASTRIC CANCER [None]
